FAERS Safety Report 11889580 (Version 6)
Quarter: 2016Q2

REPORT INFORMATION
  Report Type: Report from Study
  Country: GB (occurrence: GB)
  Receive Date: 20160105
  Receipt Date: 20160420
  Transmission Date: 20160815
  Serious: Yes (Hospitalization, Other)
  Sender: FDA-Public Use
  Company Number: GB-EISAI MEDICAL RESEARCH-EC-2016-013272

PATIENT
  Age: 47 Year
  Sex: Male
  Weight: 78 kg

DRUGS (18)
  1. DIAZEPAM. [Suspect]
     Active Substance: DIAZEPAM
     Route: 048
     Dates: start: 20151116
  2. DIAZEPAM. [Suspect]
     Active Substance: DIAZEPAM
     Indication: EPILEPSY
     Route: 048
     Dates: start: 20030607, end: 20151114
  3. OXCARBAZEPINE. [Suspect]
     Active Substance: OXCARBAZEPINE
     Indication: EPILEPSY
     Route: 048
     Dates: start: 20110510, end: 20151114
  4. TOPIRAMATE. [Suspect]
     Active Substance: TOPIRAMATE
     Route: 048
     Dates: start: 20151116
  5. CITALOPRAM [Suspect]
     Active Substance: CITALOPRAM HYDROBROMIDE
     Indication: PRODUCT USED FOR UNKNOWN INDICATION
     Route: 048
     Dates: start: 20030607, end: 20151114
  6. FYCOMPA [Suspect]
     Active Substance: PERAMPANEL
     Route: 048
     Dates: start: 20151116, end: 20151216
  7. OXCARBAZEPINE. [Suspect]
     Active Substance: OXCARBAZEPINE
     Dosage: OVERDOSE (DOSE UNKNOWN)
     Route: 048
     Dates: start: 20151115, end: 20151115
  8. DIAZEPAM. [Suspect]
     Active Substance: DIAZEPAM
     Dosage: OVERDOSE (DOSE UNKNOWN)
     Route: 048
     Dates: start: 20151115, end: 20151115
  9. OXCARBAZEPINE. [Suspect]
     Active Substance: OXCARBAZEPINE
     Route: 048
     Dates: start: 20151116
  10. CITALOPRAM [Suspect]
     Active Substance: CITALOPRAM HYDROBROMIDE
     Dosage: OVERDOSE (DOSE UNKNOWN)
     Route: 048
     Dates: start: 20151115, end: 20151115
  11. FYCOMPA [Suspect]
     Active Substance: PERAMPANEL
     Dosage: OVERDOSE (DOSE UNKNOWN)
     Route: 048
     Dates: start: 20151115, end: 20151115
  12. TOPIRAMATE. [Suspect]
     Active Substance: TOPIRAMATE
     Dosage: OVERDOSE (DOSE UNKNOWN)
     Route: 048
     Dates: start: 20151115, end: 20151115
  13. FYCOMPA [Suspect]
     Active Substance: PERAMPANEL
     Indication: EPILEPSY
     Route: 048
     Dates: start: 20150429, end: 20150527
  14. FYCOMPA [Suspect]
     Active Substance: PERAMPANEL
     Route: 048
     Dates: start: 20150528, end: 20150629
  15. TOPIRAMATE. [Suspect]
     Active Substance: TOPIRAMATE
     Indication: EPILEPSY
     Route: 048
     Dates: start: 20030211, end: 20151114
  16. FYCOMPA [Suspect]
     Active Substance: PERAMPANEL
     Route: 048
     Dates: start: 20150630, end: 20151104
  17. CITALOPRAM [Suspect]
     Active Substance: CITALOPRAM HYDROBROMIDE
     Route: 048
     Dates: start: 20151116
  18. SALBUTAMOL [Concomitant]
     Active Substance: ALBUTEROL

REACTIONS (3)
  - Intentional overdose [Recovered/Resolved]
  - Suicide attempt [Recovered/Resolved]
  - Depressed mood [Recovered/Resolved]

NARRATIVE: CASE EVENT DATE: 20150630
